FAERS Safety Report 11439795 (Version 1)
Quarter: 2015Q3

REPORT INFORMATION
  Report Type: Spontaneous
  Country: US (occurrence: None)
  Receive Date: 20150831
  Receipt Date: 20150831
  Transmission Date: 20151125
  Serious: No
  Sender: FDA-Public Use
  Company Number: None

PATIENT
  Age: 51 Year
  Sex: Male

DRUGS (3)
  1. KALYDECO [Suspect]
     Active Substance: IVACAFTOR
     Indication: CYSTIC FIBROSIS
     Route: 048
     Dates: start: 201507, end: 20150824
  2. FAMOTIDINE. [Concomitant]
     Active Substance: FAMOTIDINE
  3. LIPASE-PROTEASE.AMYLASE [Concomitant]

REACTIONS (6)
  - Cystic fibrosis [None]
  - Diarrhoea [None]
  - Weight decreased [None]
  - Flatulence [None]
  - Defaecation urgency [None]
  - Condition aggravated [None]

NARRATIVE: CASE EVENT DATE: 20150812
